FAERS Safety Report 9377319 (Version 1)
Quarter: 2013Q3

REPORT INFORMATION
  Report Type: Spontaneous
  Country: US (occurrence: US)
  Receive Date: 20130701
  Receipt Date: 20130701
  Transmission Date: 20140515
  Serious: Yes (Hospitalization)
  Sender: FDA-Public Use
  Company Number: US-BIOGENIDEC-2013BI057322

PATIENT
  Age: 57 Year
  Sex: Male

DRUGS (1)
  1. TYSABRI [Suspect]
     Indication: MULTIPLE SCLEROSIS
     Route: 042
     Dates: start: 20070226

REACTIONS (4)
  - Pyrexia [Recovered/Resolved]
  - Urinary tract infection [Unknown]
  - Blood pressure decreased [Recovered/Resolved]
  - Mental status changes [Recovered/Resolved]
